FAERS Safety Report 14127359 (Version 1)
Quarter: 2017Q4

REPORT INFORMATION
  Report Type: Spontaneous
  Country: US (occurrence: US)
  Receive Date: 20171026
  Receipt Date: 20171026
  Transmission Date: 20180321
  Serious: No
  Sender: FDA-Public Use
  Company Number: US-TEVA-726580ACC

PATIENT

DRUGS (1)
  1. CARBIDOPA AND LEVODOPA [Suspect]
     Active Substance: CARBIDOPA\LEVODOPA

REACTIONS (5)
  - Pruritus generalised [Unknown]
  - Product colour issue [Unknown]
  - Product physical issue [Unknown]
  - Peripheral swelling [Unknown]
  - Rash [Unknown]
